FAERS Safety Report 18029883 (Version 3)
Quarter: 2020Q4

REPORT INFORMATION
  Report Type: Spontaneous
  Country: JP (occurrence: JP)
  Receive Date: 20200715
  Receipt Date: 20201002
  Transmission Date: 20210113
  Serious: Yes (Hospitalization, Other)
  Sender: FDA-Public Use
  Company Number: JP-009507513-2007JPN000659J

PATIENT
  Age: 76 Year
  Sex: Male
  Weight: 66 kg

DRUGS (3)
  1. KEYTRUDA [Suspect]
     Active Substance: PEMBROLIZUMAB
     Indication: SQUAMOUS CELL CARCINOMA OF LUNG
     Dosage: 200 MILLIGRAM, Q3W
     Route: 041
     Dates: start: 20191226, end: 20200226
  2. CARBOPLATIN. [Concomitant]
     Active Substance: CARBOPLATIN
     Indication: SQUAMOUS CELL CARCINOMA OF LUNG
     Dosage: 560 MILLIGRAM, Q3W
     Route: 041
     Dates: start: 20191226, end: 20191226
  3. ABRAXANE [Concomitant]
     Active Substance: PACLITAXEL
     Indication: SQUAMOUS CELL CARCINOMA OF LUNG
     Dosage: 170 MILLIGRAM, QW
     Route: 041
     Dates: start: 20191226, end: 20200109

REACTIONS (5)
  - Anaemia [Recovered/Resolved]
  - Interstitial lung disease [Recovering/Resolving]
  - White blood cell count decreased [Recovered/Resolved]
  - Myelosuppression [Unknown]
  - Neutrophil count decreased [Recovered/Resolved]

NARRATIVE: CASE EVENT DATE: 20200103
